FAERS Safety Report 9743143 (Version 2)
Quarter: 2015Q3

REPORT INFORMATION
  Report Type: Spontaneous
  Country: US (occurrence: US)
  Receive Date: 20131210
  Receipt Date: 20150804
  Transmission Date: 20151125
  Serious: No
  Sender: FDA-Public Use
  Company Number: US-GILEAD-2009-0024302

PATIENT
  Age: 75 Year
  Sex: Male
  Weight: 80.74 kg

DRUGS (14)
  1. COUMADIN [Concomitant]
     Active Substance: WARFARIN SODIUM
  2. IPRATROPIUM SOLUTION [Concomitant]
  3. PREVACID [Concomitant]
     Active Substance: LANSOPRAZOLE
  4. ALPRAZOLAM. [Concomitant]
     Active Substance: ALPRAZOLAM
  5. TORSEMIDE. [Concomitant]
     Active Substance: TORSEMIDE
  6. ZEMPLAR [Concomitant]
     Active Substance: PARICALCITOL
  7. LETAIRIS [Suspect]
     Active Substance: AMBRISENTAN
     Indication: PULMONARY ARTERIAL HYPERTENSION
     Route: 048
     Dates: start: 20090627
  8. ALBUTEROL SULF [Concomitant]
  9. VITAMIN D [Concomitant]
     Active Substance: CHOLECALCIFEROL
  10. LISINOPRIL. [Concomitant]
     Active Substance: LISINOPRIL
  11. FLOMAX [Concomitant]
     Active Substance: TAMSULOSIN HYDROCHLORIDE
  12. ZOLPIDEM [Concomitant]
     Active Substance: ZOLPIDEM\ZOLPIDEM TARTRATE
  13. REVATIO [Concomitant]
     Active Substance: SILDENAFIL CITRATE
  14. FINASTERIDE. [Concomitant]
     Active Substance: FINASTERIDE

REACTIONS (1)
  - Fluid retention [Unknown]
